FAERS Safety Report 6539449-X (Version None)
Quarter: 2010Q1

REPORT INFORMATION
  Report Type: 
  Country: None (occurrence: None)
  Receive Date: 20100115
  Receipt Date: 20100107
  Transmission Date: 20100710
  Serious: Yes (Death)
  Sender: FDA-Public Use
  Company Number: CN-ROCHE-578288

PATIENT
  Sex: Male
  Weight: 62 kg

DRUGS (4)
  1. BEVACIZUMAB [Suspect]
     Dosage: DOSE FORM:INFUSION
     Route: 042
     Dates: start: 20080204
  2. IRINOTECAN [Suspect]
     Dosage: DOSE FORM:INFUSION
     Route: 042
     Dates: start: 20080204
  3. 5-FU [Suspect]
     Dosage: DOSE FORM:INFUSION
     Route: 042
     Dates: start: 20080204
  4. CYCLOPHOSPHAMIDE [Suspect]
     Indication: DRUG USE FOR UNKNOWN INDICATION
     Route: 065

REACTIONS (1)
  - SMALL INTESTINAL OBSTRUCTION [None]
